FAERS Safety Report 8331425 (Version 2)
Quarter: 2013Q2

REPORT INFORMATION
  Report Type: Spontaneous
  Country: US (occurrence: None)
  Receive Date: 20111130
  Receipt Date: 20121130
  Transmission Date: 20140414
  Serious: Yes (Other)
  Sender: FDA-Public Use
  Company Number: 334309

PATIENT
  Age: 79 Year
  Sex: Female
  Weight: 52.2 kg

DRUGS (7)
  1. NOVOLOG [Suspect]
     Indication: TYPE 1 DIABETES MELLITUS
     Dosage: SLIDING SCALE, SUBCUTANEOUS
     Route: 058
     Dates: start: 20110806
  2. CLONIDINE TRANSDERMAL SYSTEM [Concomitant]
  3. HYDROCHLOROTHIAZIDE (HYDROCHLOROTHIAZIDE) [Concomitant]
  4. DILANTIN /00017401/ (PHENYTOIN) [Concomitant]
  5. LISINOPRIL (LISINOPRIL) [Concomitant]
  6. CITALOPRAM HYDROBROMIDE [Concomitant]
  7. SIMVASTATIN [Concomitant]

REACTIONS (2)
  - PRODUCT QUALITY ISSUE [None]
  - BLOOD GLUCOSE INCREASED [None]
